FAERS Safety Report 8282451-0 (Version None)
Quarter: 2012Q2

REPORT INFORMATION
  Report Type: 
  Country: None (occurrence: None)
  Receive Date: 20120413
  Receipt Date: 20120412
  Transmission Date: 20120825
  Serious: Yes (Hospitalization)
  Sender: FDA-Public Use
  Company Number: DE-PFIZER INC-2009305232

PATIENT
  Age: 62 Year
  Sex: Female
  Weight: 78.1 kg

DRUGS (9)
  1. SOMATROPIN [Suspect]
     Indication: GROWTH HORMONE DEFICIENCY
     Dosage: 0.4 MG, 1X/DAY
     Dates: start: 19990208
  2. SOMATROPIN [Suspect]
     Dosage: 1 MG, 1X/DAY
     Dates: start: 20091215
  3. SIMVASTATIN [Concomitant]
     Dosage: 5 MG, 1X/DAY
     Dates: start: 20051114, end: 20100101
  4. SOMATROPIN [Suspect]
     Dosage: 0.9 MG, 1X/DAY
     Dates: start: 20020423
  5. MERICOMB [Concomitant]
     Dosage: 2 MG, 1X/DAY
     Dates: start: 20050419
  6. SOMATROPIN [Suspect]
     Dosage: 0.67 MG, 1X/DAY
     Dates: start: 20000121
  7. LEVOTHYROXINE SODIUM [Concomitant]
     Indication: BLOOD THYROID STIMULATING HORMONE DECREASED
     Dosage: 75 UG, 1X/DAY
     Dates: start: 19960415, end: 20100120
  8. SOMATROPIN [Suspect]
     Dosage: 0.7 MG, 1X/DAY
     Dates: start: 20010326
  9. LEVOTHYROXINE SODIUM [Concomitant]
     Dosage: 156 UG, 1X/DAY
     Dates: start: 20100121

REACTIONS (1)
  - POST PROCEDURAL COMPLICATION [None]
